FAERS Safety Report 8132047-6 (Version None)
Quarter: 2012Q1

REPORT INFORMATION
  Report Type: 
  Country: None (occurrence: None)
  Receive Date: 20120213
  Receipt Date: 20120131
  Transmission Date: 20120608
  Serious: Yes (Hospitalization)
  Sender: FDA-Public Use
  Company Number: DE-UCBSA-050692

PATIENT
  Sex: Female

DRUGS (3)
  1. CIMZIA [Suspect]
     Indication: RHEUMATOID ARTHRITIS
     Route: 058
     Dates: start: 20091101
  2. RITUXIMAB [Concomitant]
     Dosage: 1000 MG
     Dates: start: 20080714
  3. TOCILIZUMAB [Concomitant]
     Dosage: 480 MG
     Dates: start: 20090501, end: 20091001

REACTIONS (1)
  - SHOULDER ARTHROPLASTY [None]
